FAERS Safety Report 9848858 (Version 5)
Quarter: 2017Q1

REPORT INFORMATION
  Report Type: Spontaneous
  Country: JP (occurrence: JP)
  Receive Date: 20140128
  Receipt Date: 20170210
  Transmission Date: 20170429
  Serious: Yes (Hospitalization, Other)
  Sender: FDA-Public Use
  Company Number: JP-JNJFOC-20130802731

PATIENT
  Age: 20 Year
  Sex: Female
  Weight: 52 kg

DRUGS (13)
  1. PREDNISOLONE. [Suspect]
     Active Substance: PREDNISOLONE
     Indication: PUSTULAR PSORIASIS
     Route: 048
     Dates: start: 20130724
  2. REMICADE [Suspect]
     Active Substance: INFLIXIMAB
     Indication: PUSTULAR PSORIASIS
     Route: 042
  3. REMICADE [Suspect]
     Active Substance: INFLIXIMAB
     Indication: PUSTULAR PSORIASIS
     Route: 042
  4. CEFDINIR. [Suspect]
     Active Substance: CEFDINIR
     Indication: BIOPSY SKIN
     Dosage: 100 DF, 300 DF (DOSAGE FORM)
     Route: 048
     Dates: start: 20130709, end: 20130712
  5. REMICADE [Suspect]
     Active Substance: INFLIXIMAB
     Indication: PUSTULAR PSORIASIS
     Route: 042
     Dates: start: 20130912
  6. PREDONINE [Suspect]
     Active Substance: PREDNISOLONE
     Indication: PUSTULAR PSORIASIS
     Route: 041
     Dates: start: 20130709, end: 20130723
  7. REMICADE [Suspect]
     Active Substance: INFLIXIMAB
     Indication: PUSTULAR PSORIASIS
     Route: 042
  8. NEORAL [Suspect]
     Active Substance: CYCLOSPORINE
     Indication: PUSTULAR PSORIASIS
     Route: 048
     Dates: start: 201304, end: 20130407
  9. REMICADE [Suspect]
     Active Substance: INFLIXIMAB
     Indication: PUSTULAR PSORIASIS
     Route: 042
     Dates: start: 20131107
  10. CALONAL [Suspect]
     Active Substance: ACETAMINOPHEN
     Indication: PYREXIA
     Dosage: 400 MG, 1200 MG
     Route: 048
     Dates: start: 20130705, end: 20130716
  11. REMICADE [Suspect]
     Active Substance: INFLIXIMAB
     Indication: PUSTULAR PSORIASIS
     Route: 042
  12. REMICADE [Suspect]
     Active Substance: INFLIXIMAB
     Indication: PUSTULAR PSORIASIS
     Route: 042
     Dates: start: 20130814
  13. REMICADE [Suspect]
     Active Substance: INFLIXIMAB
     Indication: PUSTULAR PSORIASIS
     Route: 042
     Dates: start: 20130731

REACTIONS (7)
  - Exposure during pregnancy [Recovered/Resolved]
  - Amniotic cavity infection [Recovered/Resolved]
  - Placental insufficiency [Unknown]
  - Premature delivery [Recovered/Resolved]
  - Staphylococcal infection [Unknown]
  - Pustular psoriasis [Unknown]
  - Premature rupture of membranes [Recovered/Resolved]

NARRATIVE: CASE EVENT DATE: 20130731
